FAERS Safety Report 23665534 (Version 1)
Quarter: 2024Q1

REPORT INFORMATION
  Report Type: Spontaneous
  Country: US (occurrence: US)
  Receive Date: 20240323
  Receipt Date: 20240323
  Transmission Date: 20240410
  Serious: No
  Sender: FDA-Public Use
  Company Number: US-LEADINGPHARMA-US-2024LEASPO00048

PATIENT
  Sex: Female

DRUGS (1)
  1. FOLIC ACID [Suspect]
     Active Substance: FOLIC ACID
     Indication: Product used for unknown indication
     Route: 048

REACTIONS (1)
  - Urticaria [Unknown]
